FAERS Safety Report 6716114-7 (Version None)
Quarter: 2010Q2

REPORT INFORMATION
  Report Type: 
  Country: None (occurrence: None)
  Receive Date: 20100507
  Receipt Date: 20100427
  Transmission Date: 20101027
  Serious: Yes (Other)
  Sender: FDA-Public Use
  Company Number: US-JNJFOC-20070205179

PATIENT
  Sex: Female

DRUGS (2)
  1. RISPERDAL [Suspect]
     Indication: ANXIETY
     Route: 065
  2. RISPERDAL [Suspect]
     Indication: MAJOR DEPRESSION
     Route: 065

REACTIONS (6)
  - DIABETIC AMYOTROPHY [None]
  - HEADACHE [None]
  - MENOMETRORRHAGIA [None]
  - SPINAL OSTEOARTHRITIS [None]
  - TYPE 2 DIABETES MELLITUS [None]
  - WEIGHT INCREASED [None]
